FAERS Safety Report 17663105 (Version 1)
Quarter: 2020Q2

REPORT INFORMATION
  Report Type: Spontaneous
  Country: CA (occurrence: CA)
  Receive Date: 20200413
  Receipt Date: 20200413
  Transmission Date: 20200713
  Serious: Yes (Hospitalization)
  Sender: FDA-Public Use
  Company Number: CA-ANIPHARMA-2020-CA-000384

PATIENT
  Age: 77 Year
  Sex: Female

DRUGS (3)
  1. UNSPECIFIED RADIOLOGIC IODINE [Suspect]
     Active Substance: IODINE
     Indication: DIAGNOSTIC PROCEDURE
  2. PIPERACILLIN AND TAZOBACTAM [Suspect]
     Active Substance: PIPERACILLIN SODIUM\TAZOBACTAM SODIUM
     Indication: PRODUCT USED FOR UNKNOWN INDICATION
  3. IBUPROFEN (NON-SPECIFIC) [Suspect]
     Active Substance: IBUPROFEN
     Indication: PRODUCT USED FOR UNKNOWN INDICATION

REACTIONS (2)
  - Acute generalised exanthematous pustulosis [Recovered/Resolved]
  - Toxic epidermal necrolysis [Recovered/Resolved]
